FAERS Safety Report 14009030 (Version 2)
Quarter: 2017Q4

REPORT INFORMATION
  Report Type: Report from Study
  Country: GB (occurrence: GB)
  Receive Date: 20170925
  Receipt Date: 20171004
  Transmission Date: 20180321
  Serious: Yes (Hospitalization, Other)
  Sender: FDA-Public Use
  Company Number: GB-CELGENEUS-GBR-20170905634

PATIENT
  Age: 75 Year
  Sex: Female
  Weight: 75.6 kg

DRUGS (13)
  1. GABAPENTIN. [Concomitant]
     Active Substance: GABAPENTIN
     Dosage: 3000 MILLIGRAM/MILLILITERS
     Route: 065
     Dates: start: 20170731
  2. ACICLOVIR [Concomitant]
     Active Substance: ACYCLOVIR
     Indication: ANTIVIRAL TREATMENT
     Dosage: 1200 MILLIGRAM
     Route: 065
     Dates: start: 20170619
  3. CIPROFLOXACIN. [Concomitant]
     Active Substance: CIPROFLOXACIN
     Indication: ANTIBIOTIC THERAPY
     Dosage: 5000 MILLIGRAM
     Route: 065
     Dates: start: 20170619
  4. GABAPENTIN. [Concomitant]
     Active Substance: GABAPENTIN
     Indication: ANALGESIC THERAPY
     Dosage: 1200 MILLIGRAM/MILLILITERS
     Route: 065
     Dates: start: 20170731
  5. MORPHINE [Concomitant]
     Active Substance: MORPHINE
     Indication: ANALGESIC THERAPY
     Dosage: 20 MILLIGRAM
     Route: 065
     Dates: start: 20170918
  6. PARACETAMOL [Concomitant]
     Active Substance: ACETAMINOPHEN
     Indication: ANALGESIC THERAPY
     Dosage: 1 GRAM
     Route: 065
  7. AZACITIDINE. [Suspect]
     Active Substance: AZACITIDINE
     Indication: PRODUCT USED FOR UNKNOWN INDICATION
     Dosage: 125 MILLIGRAM
     Route: 058
     Dates: start: 20170619, end: 20170915
  8. FUROSEMIDE. [Concomitant]
     Active Substance: FUROSEMIDE
     Indication: FLUID RETENTION
     Dosage: 20 MILLIGRAM
     Route: 065
     Dates: start: 20170830
  9. PRAVASTATIN. [Concomitant]
     Active Substance: PRAVASTATIN
     Indication: BLOOD CHOLESTEROL INCREASED
     Dosage: 20 MILLIGRAM
     Route: 065
  10. ENOXAPARIN [Concomitant]
     Active Substance: ENOXAPARIN
     Indication: ANTICOAGULANT THERAPY
     Dosage: 40 MILLIGRAM
     Route: 065
     Dates: start: 20170718
  11. RUXOLITINIB [Suspect]
     Active Substance: RUXOLITINIB
     Indication: PRODUCT USED FOR UNKNOWN INDICATION
     Route: 048
     Dates: start: 20170619
  12. OMEPRAZOLE. [Concomitant]
     Active Substance: OMEPRAZOLE
     Indication: GASTROOESOPHAGEAL REFLUX DISEASE
     Dosage: 20 MILLIGRAM
     Route: 065
  13. SENNA [Concomitant]
     Active Substance: SENNA LEAF\SENNOSIDES\SENNOSIDES A AND B
     Indication: LAXATIVE SUPPORTIVE CARE
     Dosage: 17.5 MILLIGRAM
     Route: 065

REACTIONS (1)
  - Back pain [Not Recovered/Not Resolved]

NARRATIVE: CASE EVENT DATE: 20170830
